FAERS Safety Report 4756663-4 (Version None)
Quarter: 2005Q3

REPORT INFORMATION
  Report Type: 
  Country: None (occurrence: None)
  Receive Date: 20050830
  Receipt Date: 20050826
  Transmission Date: 20060218
  Serious: Yes (Hospitalization)
  Sender: FDA-Public Use
  Company Number: 2005/0426

PATIENT
  Age: 58 Year
  Sex: Male
  Weight: 77.7 kg

DRUGS (10)
  1. COMBIVIR [Suspect]
     Indication: HIV INFECTION
     Dosage: 150MG TWICE PER DAY
     Route: 048
     Dates: start: 19991101
  2. NEVIRAPINE [Suspect]
     Indication: HIV INFECTION
     Dosage: 200MG TWICE PER DAY
     Route: 048
     Dates: start: 19990907
  3. ALBUTEROL + IPRATROPIUM BROMIDE [Concomitant]
  4. BISACODYL [Concomitant]
  5. BUSPIRONE HCL [Concomitant]
  6. BENADRYL [Concomitant]
  7. FELODIPINE [Concomitant]
  8. LISINOPRIL [Concomitant]
  9. OMEPRAZOLE [Concomitant]
  10. PAROXETINE [Concomitant]

REACTIONS (10)
  - BRONCHITIS [None]
  - CARDIAC FAILURE [None]
  - CARDIAC FAILURE CONGESTIVE [None]
  - CARDIOMEGALY [None]
  - CARDIOMYOPATHY [None]
  - DYSPNOEA [None]
  - PNEUMONIA [None]
  - RHONCHI [None]
  - SPUTUM ABNORMAL [None]
  - TREATMENT NONCOMPLIANCE [None]
